FAERS Safety Report 6305963-5 (Version None)
Quarter: 2009Q3

REPORT INFORMATION
  Report Type: 
  Country: None (occurrence: None)
  Receive Date: 20090810
  Receipt Date: 20090810
  Transmission Date: 20100115
  Serious: Yes (Life-Threatening)
  Sender: FDA-Public Use
  Company Number: None

PATIENT
  Age: 45 Year
  Sex: Male
  Weight: 65.7716 kg

DRUGS (1)
  1. SMOKING EVERYWHERE ELECTRONIC CIGARETTE PERSONAL VAPORIZER [Suspect]

REACTIONS (1)
  - NO ADVERSE EVENT [None]
